FAERS Safety Report 17064552 (Version 1)
Quarter: 2019Q4

REPORT INFORMATION
  Report Type: Spontaneous
  Country: CZ (occurrence: CZ)
  Receive Date: 20191122
  Receipt Date: 20191122
  Transmission Date: 20200122
  Serious: Yes (Death, Other)
  Sender: FDA-Public Use
  Company Number: CZ-SA-2019SA321180

PATIENT
  Age: 87 Year
  Sex: Female

DRUGS (11)
  1. METFORMIN HYDROCHLORIDE. [Suspect]
     Active Substance: METFORMIN HYDROCHLORIDE
     Route: 065
  2. AMLODIPINE BESILATE/INDAPAMIDE/PERINDOPRIL ARGININE [Suspect]
     Active Substance: AMLODIPINE BESYLATE\INDAPAMIDE\PERINDOPRIL ARGININE
     Route: 065
  3. LANTUS [Suspect]
     Active Substance: INSULIN GLARGINE
     Route: 065
  4. AMOXICILLIN TRIHYDRATE/POTASSIUM CLAVULANATE [Suspect]
     Active Substance: AMOXICILLIN\CLAVULANATE POTASSIUM
     Route: 065
  5. FAMOTIDINE. [Suspect]
     Active Substance: FAMOTIDINE
  6. HUMULIN R [Suspect]
     Active Substance: INSULIN HUMAN
  7. GODASAL [Suspect]
     Active Substance: ASPIRIN\GLYCINE
  8. CITALOPRAM [Suspect]
     Active Substance: CITALOPRAM HYDROBROMIDE
     Route: 065
  9. POTASSIUM CHLORIDE. [Suspect]
     Active Substance: POTASSIUM CHLORIDE
  10. FUROSEMIDE. [Suspect]
     Active Substance: FUROSEMIDE
     Route: 065
  11. OXANTIL [Suspect]
     Active Substance: ETOFYLLINE\THEOPHYLLINE

REACTIONS (5)
  - Cardiac failure [Fatal]
  - Nausea [Unknown]
  - Renal failure [Fatal]
  - Diarrhoea [Unknown]
  - Vomiting [Unknown]

NARRATIVE: CASE EVENT DATE: 201908
